FAERS Safety Report 15544557 (Version 2)
Quarter: 2019Q2

REPORT INFORMATION
  Report Type: Spontaneous
  Country: KR (occurrence: KR)
  Receive Date: 20181024
  Receipt Date: 20190425
  Transmission Date: 20190711
  Serious: Yes (Hospitalization, Other)
  Sender: FDA-Public Use
  Company Number: KR-SUN PHARMACEUTICAL INDUSTRIES LTD-2018R1-189083

PATIENT
  Age: 55 Year
  Sex: Female

DRUGS (1)
  1. METHIMAZOLE. [Suspect]
     Active Substance: METHIMAZOLE
     Indication: BLOOD THYROID STIMULATING HORMONE DECREASED
     Dosage: 20 MILLIGRAM, DAILY
     Route: 065

REACTIONS (3)
  - Pleural effusion [Recovering/Resolving]
  - Hypothyroidism [Recovering/Resolving]
  - Pericardial effusion [Recovering/Resolving]
